FAERS Safety Report 23057684 (Version 2)
Quarter: 2024Q4

REPORT INFORMATION
  Report Type: Report from Study
  Country: US (occurrence: US)
  Receive Date: 20231012
  Receipt Date: 20241119
  Transmission Date: 20250115
  Serious: Yes (Other)
  Sender: NOVARTIS
  Company Number: US-002147023-NVSC2023US029979

PATIENT
  Sex: Male

DRUGS (6)
  1. ENTRESTO [Suspect]
     Active Substance: SACUBITRIL\VALSARTAN
     Indication: Atrial fibrillation
     Dosage: UNK
     Route: 048
     Dates: start: 202210
  2. ENTRESTO [Suspect]
     Active Substance: SACUBITRIL\VALSARTAN
     Dosage: UNK
     Route: 065
     Dates: start: 2023
  3. ELIQUIS [Concomitant]
     Active Substance: APIXABAN
     Indication: Atrial fibrillation
     Dosage: UNK
     Route: 065
  4. FARXIGA [Concomitant]
     Active Substance: DAPAGLIFLOZIN PROPANEDIOL
     Indication: Product used for unknown indication
     Dosage: UNK
     Route: 065
  5. LYRICA [Concomitant]
     Active Substance: PREGABALIN
     Indication: Product used for unknown indication
     Route: 065
  6. METOPROLOL [Concomitant]
     Active Substance: METOPROLOL
     Indication: Product used for unknown indication
     Route: 065

REACTIONS (3)
  - Pollakiuria [Unknown]
  - Neuropathy peripheral [Unknown]
  - Blood pressure fluctuation [Not Recovered/Not Resolved]
